FAERS Safety Report 5591377-2 (Version None)
Quarter: 2008Q1

REPORT INFORMATION
  Report Type: 
  Country: None (occurrence: None)
  Receive Date: 20080115
  Receipt Date: 20080109
  Transmission Date: 20080703
  Serious: Yes (Hospitalization)
  Sender: FDA-Public Use
  Company Number: FR-AVENTIS-200810088FR

PATIENT
  Age: 52 Year
  Sex: Female

DRUGS (9)
  1. AMARYL [Suspect]
     Route: 048
     Dates: start: 20070913, end: 20070928
  2. CAPTEA [Concomitant]
     Route: 048
     Dates: start: 20040101
  3. VOLTAREN [Concomitant]
     Route: 048
     Dates: start: 20040101
  4. DIOSMINE [Concomitant]
     Route: 048
     Dates: start: 20040101
  5. ENBREL [Concomitant]
     Indication: RHEUMATOID ARTHRITIS
     Route: 058
     Dates: start: 20050101
  6. CORTANCYL [Concomitant]
     Indication: RHEUMATOID ARTHRITIS
     Route: 048
  7. ARAVA [Concomitant]
     Indication: RHEUMATOID ARTHRITIS
     Route: 048
  8. LEVOTHYROX [Concomitant]
     Indication: HYPOTHYROIDISM
     Route: 048
  9. METFORMIN HCL [Concomitant]
     Route: 048

REACTIONS (1)
  - PANCREATITIS [None]
